FAERS Safety Report 8443940-9 (Version None)
Quarter: 2012Q2

REPORT INFORMATION
  Report Type: 
  Country: None (occurrence: None)
  Receive Date: 20120618
  Receipt Date: 20120606
  Transmission Date: 20120825
  Serious: Yes (Other)
  Sender: FDA-Public Use
  Company Number: FR-PAR PHARMACEUTICAL, INC-2012SCPR004400

PATIENT

DRUGS (5)
  1. ROCEPHIN [Concomitant]
     Indication: LIVER ABSCESS
     Dosage: 1 G, AFTER EACH DIALYSIS
     Route: 042
     Dates: start: 20070423
  2. OFLOXACIN [Concomitant]
     Indication: LIVER ABSCESS
     Dosage: 200 MG, EVERY 48 HOURS
     Route: 065
     Dates: start: 20070423
  3. SANDIMMUNE [Concomitant]
     Indication: HEPATITIS C
     Dosage: 75 MG, / DAY
     Route: 065
  4. METRONIDAZOLE [Suspect]
     Indication: LIVER ABSCESS
     Dosage: 1.5 G/DAY
     Route: 065
     Dates: start: 20070423, end: 20070720
  5. PREDNISOLONE [Concomitant]
     Indication: HEPATITIS C
     Dosage: 5 MG, / DAY
     Route: 065

REACTIONS (3)
  - CEREBELLAR SYNDROME [None]
  - MYOCLONIC EPILEPSY [None]
  - PERIPHERAL SENSORIMOTOR NEUROPATHY [None]
